FAERS Safety Report 8802437 (Version 1)
Quarter: 2012Q4

REPORT INFORMATION
  Report Type: Report from Study
  Country: HU (occurrence: HU)
  Receive Date: 20120921
  Receipt Date: 20120921
  Transmission Date: 20130627
  Serious: Yes (Other)
  Sender: FDA-Public Use
  Company Number: HU-ROCHE-1119271

PATIENT
  Sex: Female

DRUGS (3)
  1. XELODA [Suspect]
     Indication: BREAST CANCER
     Route: 048
     Dates: start: 200903, end: 201002
  2. HERCEPTIN [Concomitant]
  3. TIBERAL [Concomitant]

REACTIONS (2)
  - Lymphadenopathy [Unknown]
  - Lymphoma [Unknown]
